FAERS Safety Report 7016385-6 (Version None)
Quarter: 2010Q3

REPORT INFORMATION
  Report Type: 
  Country: None (occurrence: None)
  Receive Date: 20100927
  Receipt Date: 20100913
  Transmission Date: 20110219
  Serious: Yes (Hospitalization, Other)
  Sender: FDA-Public Use
  Company Number: PHHY2010US60504

PATIENT
  Sex: Female
  Weight: 62.132 kg

DRUGS (4)
  1. RECLAST [Suspect]
     Indication: OSTEOPOROTIC FRACTURE
     Dosage: 5MG
     Route: 042
     Dates: start: 20100902
  2. OXYCONTIN [Concomitant]
  3. ZOLOFT [Concomitant]
  4. VITAMIN D [Concomitant]

REACTIONS (12)
  - BLADDER CATHETERISATION [None]
  - BLADDER DILATATION [None]
  - BLOOD CREATINE PHOSPHOKINASE INCREASED [None]
  - HYDRONEPHROSIS [None]
  - MICTURITION URGENCY [None]
  - MYALGIA [None]
  - NAUSEA [None]
  - PAIN [None]
  - PYREXIA [None]
  - URINARY RETENTION [None]
  - URINE OUTPUT DECREASED [None]
  - VOMITING [None]
